FAERS Safety Report 17534183 (Version 2)
Quarter: 2020Q1

REPORT INFORMATION
  Report Type: Spontaneous
  Country: CH (occurrence: CH)
  Receive Date: 20200312
  Receipt Date: 20200318
  Transmission Date: 20200409
  Serious: Yes (Other)
  Sender: FDA-Public Use
  Company Number: CH-ASTRAZENECA-2020SE34601

PATIENT
  Sex: Female
  Weight: 49 kg

DRUGS (1)
  1. TAGRISSO [Suspect]
     Active Substance: OSIMERTINIB
     Indication: NON-SMALL CELL LUNG CANCER
     Route: 048
     Dates: start: 20190228

REACTIONS (10)
  - Lipoma [Unknown]
  - Cataract [Unknown]
  - Wrist fracture [Unknown]
  - Taste disorder [Unknown]
  - Alopecia [Recovering/Resolving]
  - Therapeutic product effect decreased [Unknown]
  - Diarrhoea [Unknown]
  - Weight decreased [Unknown]
  - Tooth deposit [Unknown]
  - Onychoclasis [Recovering/Resolving]
